FAERS Safety Report 5405823-8 (Version None)
Quarter: 2007Q3

REPORT INFORMATION
  Report Type: 
  Country: None (occurrence: None)
  Receive Date: 20070806
  Receipt Date: 20070724
  Transmission Date: 20080115
  Serious: Yes (Hospitalization, Other)
  Sender: FDA-Public Use
  Company Number: GB-NOVOPROD-265987

PATIENT
  Age: 36 Year
  Sex: Male
  Weight: 90 kg

DRUGS (3)
  1. NORDITROPIN [Suspect]
     Indication: INTENTIONAL DRUG MISUSE
  2. INSULIN [Concomitant]
     Indication: INTENTIONAL DRUG MISUSE
  3. ANABOLIC STEROIDS [Concomitant]
     Indication: INTENTIONAL DRUG MISUSE

REACTIONS (8)
  - DEHYDRATION [None]
  - HEPATIC FUNCTION ABNORMAL [None]
  - HYPERGLYCAEMIA [None]
  - HYPERPHAGIA [None]
  - INTENTIONAL DRUG MISUSE [None]
  - POLYDIPSIA [None]
  - POLYURIA [None]
  - WEIGHT DECREASED [None]
